FAERS Safety Report 23670650 (Version 3)
Quarter: 2024Q2

REPORT INFORMATION
  Report Type: Spontaneous
  Country: US (occurrence: US)
  Receive Date: 20240326
  Receipt Date: 20240417
  Transmission Date: 20240716
  Serious: No
  Sender: FDA-Public Use
  Company Number: US-002147023-NVSC2024US064423

PATIENT
  Age: 72 Year
  Sex: Male
  Weight: 98.4 kg

DRUGS (1)
  1. PLUVICTO [Suspect]
     Active Substance: LUTETIUM LU-177 VIPIVOTIDE TETRAXETAN
     Indication: Hormone-refractory prostate cancer
     Dosage: UNK, (P000066335)
     Route: 042
     Dates: start: 20230905, end: 20240220

REACTIONS (1)
  - Illness [Unknown]
